FAERS Safety Report 4545384-9 (Version None)
Quarter: 2005Q1

REPORT INFORMATION
  Report Type: 
  Country: None (occurrence: None)
  Receive Date: 20050103
  Receipt Date: 20041217
  Transmission Date: 20050727
  Serious: Yes (Hospitalization)
  Sender: FDA-Public Use
  Company Number: 105710ISR

PATIENT
  Age: 65 Year
  Sex: Female

DRUGS (5)
  1. FLUOROURACIL [Suspect]
     Indication: BREAST CANCER
     Dosage: 954 MILLIGRAM
     Route: 042
     Dates: start: 20041130, end: 20041130
  2. CYCLOPHOSPHAMIDE [Suspect]
     Indication: BREAST CANCER
     Dosage: 954 MILLIGRAM
     Route: 042
     Dates: start: 20041130, end: 20041130
  3. EPIRUBICIN [Suspect]
     Indication: BREAST CANCER
     Dosage: 143 MILLIGRAM
     Route: 042
     Dates: start: 20041130, end: 20041130
  4. CLARITHROMYCIN [Concomitant]
  5. CEFTIBUFEN [Concomitant]

REACTIONS (2)
  - COUGH [None]
  - HYPERPYREXIA [None]
